FAERS Safety Report 4287452-5 (Version None)
Quarter: 2004Q1

REPORT INFORMATION
  Report Type: 
  Country: None (occurrence: None)
  Receive Date: 20040205
  Receipt Date: 20040121
  Transmission Date: 20041129
  Serious: Yes (Hospitalization)
  Sender: FDA-Public Use
  Company Number: F01200400117

PATIENT
  Age: 71 Year
  Sex: Female

DRUGS (5)
  1. (OXALIPLATIN) [Suspect]
     Indication: COLORECTAL CANCER METASTATIC
     Dosage: 85 MG/M2 Q2W; INTRAVENOUS NOS
     Route: 042
     Dates: start: 20031201
  2. FLUOROURACIL [Suspect]
     Dosage: INTRAVENOUS NOS
     Route: 042
     Dates: start: 20031201
  3. LEUCOVORIN CALCIUM [Suspect]
     Dosage: INTRAVENOUS NOS
     Route: 042
     Dates: start: 20031201
  4. (PTK787/ZK 222584 OR PLACEBO) [Concomitant]
     Dosage: 1250 MG Q2W
     Route: 048
     Dates: start: 20031201, end: 20031215
  5. (PTK787/ZK 222584 OR PLACEBO) [Concomitant]
     Dosage: 1250 MG Q2W
     Route: 048
     Dates: start: 20031222, end: 20031225

REACTIONS (1)
  - LARYNGOSPASM [None]
